FAERS Safety Report 9382076 (Version 1)
Quarter: 2013Q3

REPORT INFORMATION
  Report Type: Spontaneous
  Country: RO (occurrence: RO)
  Receive Date: 20130703
  Receipt Date: 20130703
  Transmission Date: 20140515
  Serious: Yes (Hospitalization)
  Sender: FDA-Public Use
  Company Number: RO-ABBOTT-13P-135-1110540-00

PATIENT
  Sex: Female
  Weight: 90 kg

DRUGS (1)
  1. HUMIRA [Suspect]
     Indication: PSORIASIS
     Route: 058
     Dates: start: 201004, end: 201306

REACTIONS (4)
  - Hiatus hernia [Unknown]
  - Intestinal mass [Unknown]
  - Vomiting [Unknown]
  - Decreased appetite [Unknown]
